FAERS Safety Report 10703274 (Version 1)
Quarter: 2015Q1

REPORT INFORMATION
  Report Type: Spontaneous
  Country: JP (occurrence: JP)
  Receive Date: 20150112
  Receipt Date: 20150112
  Transmission Date: 20150721
  Serious: Yes (Other)
  Sender: FDA-Public Use
  Company Number: JP-BRISTOL-MYERS SQUIBB COMPANY-BMS-2015-001439

PATIENT
  Age: 77 Year
  Sex: Female
  Weight: 49 kg

DRUGS (1)
  1. WARFARIN SODIUM. [Suspect]
     Active Substance: WARFARIN SODIUM
     Indication: CEREBRAL INFARCTION
     Dosage: 3.5 MG, UNK
     Route: 065
     Dates: start: 20081217

REACTIONS (4)
  - Haematochezia [None]
  - International normalised ratio increased [Recovering/Resolving]
  - Rectal cancer [Unknown]
  - Pyrexia [Unknown]

NARRATIVE: CASE EVENT DATE: 201312
